FAERS Safety Report 6357135-6 (Version None)
Quarter: 2009Q3

REPORT INFORMATION
  Report Type: 
  Country: None (occurrence: None)
  Receive Date: 20090910
  Receipt Date: 20090901
  Transmission Date: 20100115
  Serious: Yes (Disabling)
  Sender: FDA-Public Use
  Company Number: SPV1-2009-01563

PATIENT
  Age: 25 Year
  Sex: Female
  Weight: 48.1 kg

DRUGS (2)
  1. CARBATROL [Suspect]
     Indication: CONVULSION
     Dosage: 300 MG, TWO CAPSULES 2X/DAY:BID, 300 MG, 2 CAPSULES, 2X/DAY:BID, ORAL
     Dates: end: 20090718
  2. CARBATROL [Suspect]
     Indication: CONVULSION
     Dosage: 300 MG, TWO CAPSULES 2X/DAY:BID, 300 MG, 2 CAPSULES, 2X/DAY:BID, ORAL
     Dates: start: 20090701

REACTIONS (5)
  - ANTICONVULSANT DRUG LEVEL INCREASED [None]
  - DIARRHOEA [None]
  - NAUSEA [None]
  - PRODUCT QUALITY ISSUE [None]
  - VOMITING [None]
